FAERS Safety Report 12233071 (Version 1)
Quarter: 2016Q2

REPORT INFORMATION
  Report Type: Other
  Country: GB (occurrence: GB)
  Receive Date: 20160403
  Receipt Date: 20160403
  Transmission Date: 20160815
  Serious: Yes (Hospitalization)
  Sender: FDA-Public Use
  Company Number: GB-MYLANLABS-2016M1012920

PATIENT

DRUGS (2)
  1. PREGABALIN. [Concomitant]
     Active Substance: PREGABALIN
     Dosage: UNK
  2. FLUOXETINE [Suspect]
     Active Substance: FLUOXETINE HYDROCHLORIDE
     Dosage: UNK
     Route: 048
     Dates: start: 20160309, end: 20160310

REACTIONS (5)
  - Muscle twitching [Unknown]
  - Anxiety [Unknown]
  - Serotonin syndrome [Recovering/Resolving]
  - Muscle spasms [Unknown]
  - Hyperhidrosis [Unknown]

NARRATIVE: CASE EVENT DATE: 20160310
